FAERS Safety Report 17059465 (Version 2)
Quarter: 2019Q4

REPORT INFORMATION
  Report Type: Spontaneous
  Country: GB (occurrence: GB)
  Receive Date: 20191121
  Receipt Date: 20191128
  Transmission Date: 20200122
  Serious: Yes (Other)
  Sender: FDA-Public Use
  Company Number: GB-UCBSA-2019047993

PATIENT
  Age: 63 Year
  Sex: Female

DRUGS (4)
  1. KEPPRA [Suspect]
     Active Substance: LEVETIRACETAM
     Indication: EPILEPSY
     Dosage: EVERY 12 HOURS
  2. ADCAL D3 [Concomitant]
     Active Substance: CALCIUM CARBONATE\CHOLECALCIFEROL
     Indication: PRODUCT USED FOR UNKNOWN INDICATION
     Dosage: CHEWABLE TABLET, EVERY 12 HOURS
  3. FORCEVAL [AMINO ACIDS NOS;ELECTROLYTES NOS;FERROUS FUMARATE;NICOTINAMI [Concomitant]
     Indication: PRODUCT USED FOR UNKNOWN INDICATION
     Dosage: ONE HOUR BEFORE MEAL
  4. ALENDRONIC ACID [Concomitant]
     Active Substance: ALENDRONIC ACID
     Indication: PRODUCT USED FOR UNKNOWN INDICATION
     Dosage: 70 MILLIGRAM, WEEKLY (QW)

REACTIONS (4)
  - Seizure [Unknown]
  - Eczema [Unknown]
  - Insomnia [Unknown]
  - Irritability [Unknown]
